FAERS Safety Report 7215208-X (Version None)
Quarter: 2011Q1

REPORT INFORMATION
  Report Type: 
  Country: None (occurrence: None)
  Receive Date: 20110107
  Receipt Date: 20101028
  Transmission Date: 20110831
  Serious: No
  Sender: FDA-Public Use
  Company Number: A0889397A

PATIENT
  Sex: Male

DRUGS (6)
  1. ZOCOR [Concomitant]
  2. SIMVASTATIN [Concomitant]
  3. LOVAZA [Suspect]
     Dosage: 1CAP TWICE PER DAY
     Route: 048
  4. AGGRENOX [Concomitant]
  5. NORVASC [Concomitant]
  6. COREG [Concomitant]

REACTIONS (7)
  - ERUCTATION [None]
  - DECREASED APPETITE [None]
  - BACK PAIN [None]
  - ABDOMINAL DISCOMFORT [None]
  - CHILLS [None]
  - AGEUSIA [None]
  - DIARRHOEA [None]
